FAERS Safety Report 7141320-X (Version None)
Quarter: 2010Q4

REPORT INFORMATION
  Report Type: 
  Country: None (occurrence: None)
  Receive Date: 20101202
  Receipt Date: 20101202
  Transmission Date: 20110411
  Serious: Yes (Disabling)
  Sender: FDA-Public Use
  Company Number: None

PATIENT
  Sex: Female
  Weight: 56.6996 kg

DRUGS (1)
  1. PLAVIX [Suspect]
     Dosage: 1 DAILY EVERY DAY
     Dates: start: 20071128, end: 20100301

REACTIONS (3)
  - BURNING SENSATION [None]
  - PRURITUS [None]
  - VENOUS HAEMORRHAGE [None]
